FAERS Safety Report 11247107 (Version 2)
Quarter: 2015Q4

REPORT INFORMATION
  Report Type: Spontaneous
  Country: US (occurrence: US)
  Receive Date: 20150708
  Receipt Date: 20151007
  Transmission Date: 20160304
  Serious: No
  Sender: FDA-Public Use
  Company Number: US-PFIZER INC-2015220806

PATIENT
  Age: 59 Year
  Sex: Female
  Weight: 52 kg

DRUGS (6)
  1. FAMOTIDINE. [Concomitant]
     Active Substance: FAMOTIDINE
     Indication: CROHN^S DISEASE
     Dosage: 40 MG, DAILY
     Dates: start: 2014
  2. COLESTIPOL HCL [Suspect]
     Active Substance: COLESTIPOL HYDROCHLORIDE
     Dosage: 5 G, 3X/DAY
     Route: 048
     Dates: start: 201506, end: 20150626
  3. COLESTIPOL HCL [Suspect]
     Active Substance: COLESTIPOL HYDROCHLORIDE
     Indication: CROHN^S DISEASE
     Dosage: 5 UNK, UNK
     Dates: start: 201504
  4. B12-VITAMIIN [Concomitant]
     Indication: CROHN^S DISEASE
     Dosage: 1000 MG, DAILY
     Dates: start: 2010
  5. ULTRAM [Concomitant]
     Active Substance: TRAMADOL HYDROCHLORIDE
     Indication: ABDOMINAL PAIN UPPER
     Dosage: 50 MG, AS NEEDED, BEEN TAKING IT 2 OR 3 TIMES A DAY
     Dates: start: 2014
  6. AZASAN [Concomitant]
     Active Substance: AZATHIOPRINE
     Indication: CROHN^S DISEASE
     Dosage: 75 MG, 2X/DAY
     Dates: start: 2010

REACTIONS (6)
  - Constipation [Not Recovered/Not Resolved]
  - Incorrect dose administered [Recovered/Resolved]
  - Malaise [Not Recovered/Not Resolved]
  - Drug dispensing error [Recovered/Resolved]
  - Influenza like illness [Not Recovered/Not Resolved]
  - Vomiting [Not Recovered/Not Resolved]

NARRATIVE: CASE EVENT DATE: 201506
